FAERS Safety Report 4691104-7 (Version None)
Quarter: 2005Q2

REPORT INFORMATION
  Report Type: 
  Country: None (occurrence: None)
  Receive Date: 20050610
  Receipt Date: 20050531
  Transmission Date: 20051028
  Serious: Yes (Other)
  Sender: FDA-Public Use
  Company Number: 2005060811

PATIENT
  Age: 21 Year
  Sex: Male

DRUGS (1)
  1. BEXTRA [Suspect]
     Indication: POST PROCEDURAL PAIN
     Dosage: (40 MG), ORAL
     Route: 048
     Dates: start: 20041101, end: 20041101

REACTIONS (5)
  - BLISTER [None]
  - FUNGAL INFECTION [None]
  - SCAR [None]
  - SKIN DISCOLOURATION [None]
  - SKIN EXFOLIATION [None]
